FAERS Safety Report 11360257 (Version 1)
Quarter: 2015Q3

REPORT INFORMATION
  Report Type: Report from Study
  Country: US (occurrence: US)
  Receive Date: 20150810
  Receipt Date: 20150810
  Transmission Date: 20151125
  Serious: No
  Sender: FDA-Public Use
  Company Number: PHEH2014US014202

PATIENT
  Age: 43 Year
  Sex: Female
  Weight: 66.4 kg

DRUGS (5)
  1. TYLENOL [Concomitant]
     Active Substance: ACETAMINOPHEN
     Indication: PRODUCT USED FOR UNKNOWN INDICATION
     Dosage: UNK, PRN
     Route: 048
  2. EXTAVIA [Suspect]
     Active Substance: INTERFERON BETA-1B
     Indication: MULTIPLE SCLEROSIS
     Dosage: 0.25 MG, QOD
     Route: 058
     Dates: start: 20140708, end: 20140710
  3. EXTAVIA [Suspect]
     Active Substance: INTERFERON BETA-1B
     Indication: CLINICALLY ISOLATED SYNDROME
     Dosage: 0.0625 MG, QOD
     Route: 058
     Dates: start: 20140710
  4. STOOL SOFTENER [Concomitant]
     Active Substance: DOCUSATE CALCIUM
     Indication: PRODUCT USED FOR UNKNOWN INDICATION
     Dosage: UNK, PRN
     Route: 048
  5. MOTRIN [Concomitant]
     Active Substance: IBUPROFEN
     Indication: PRODUCT USED FOR UNKNOWN INDICATION
     Dosage: UNK, PRN
     Route: 048

REACTIONS (6)
  - Injection site bruising [Unknown]
  - Application site pain [Unknown]
  - Hyperhidrosis [Not Recovered/Not Resolved]
  - Aggression [Unknown]
  - Restless legs syndrome [Not Recovered/Not Resolved]
  - Injection site discolouration [Unknown]

NARRATIVE: CASE EVENT DATE: 20140710
